FAERS Safety Report 14911712 (Version 1)
Quarter: 2018Q2

REPORT INFORMATION
  Report Type: Spontaneous
  Country: FI (occurrence: FI)
  Receive Date: 20180518
  Receipt Date: 20180518
  Transmission Date: 20180711
  Serious: Yes (Death, Hospitalization)
  Sender: FDA-Public Use
  Company Number: FI-B.I. PHARMACEUTICALS,INC./RIDGEFIELD-2018-BI-026403

PATIENT
  Age: 88 Year
  Sex: Male

DRUGS (1)
  1. PRAXBIND [Suspect]
     Active Substance: IDARUCIZUMAB
     Indication: HAEMATURIA
     Route: 065

REACTIONS (2)
  - Anaemia [Fatal]
  - Haematuria [Fatal]
